FAERS Safety Report 7377556-2 (Version None)
Quarter: 2011Q1

REPORT INFORMATION
  Report Type: 
  Country: None (occurrence: None)
  Receive Date: 20110328
  Receipt Date: 20110302
  Transmission Date: 20110831
  Serious: Yes (Hospitalization)
  Sender: FDA-Public Use
  Company Number: JP-RANBAXY-2011RR-43049

PATIENT
  Age: 67 Year
  Sex: Male

DRUGS (2)
  1. GENTAMICIN [Concomitant]
     Indication: HERPES ZOSTER
  2. VALACYCLOVIR [Suspect]
     Indication: HERPES ZOSTER
     Dosage: 500 MG, BID
     Route: 048

REACTIONS (5)
  - HALLUCINATION [None]
  - INSOMNIA [None]
  - ANXIETY [None]
  - NEUROTOXICITY [None]
  - OVERDOSE [None]
